FAERS Safety Report 8069944-6 (Version None)
Quarter: 2012Q1

REPORT INFORMATION
  Report Type: 
  Country: None (occurrence: None)
  Receive Date: 20120125
  Receipt Date: 20120119
  Transmission Date: 20120608
  Serious: Yes (Death, Hospitalization)
  Sender: FDA-Public Use
  Company Number: DE-COVIDIEN/TYCO HEALTHCARE/MALLINCKRODT-T201200461

PATIENT
  Sex: Female
  Weight: 66 kg

DRUGS (5)
  1. METFORMIN HCL [Concomitant]
     Dosage: UNK
     Dates: end: 20120115
  2. OPTIRAY 160 [Suspect]
     Indication: COMPUTERISED TOMOGRAM
     Dosage: 75 ML, SINGLE
     Route: 042
     Dates: start: 20120116, end: 20120116
  3. RAMIPRIL HCT [Concomitant]
  4. JONOSTERIL                         /00351401/ [Concomitant]
  5. IRENAT [Concomitant]
     Route: 048

REACTIONS (3)
  - CONVULSION [None]
  - CARDIAC ARREST [None]
  - TREMOR [None]
